FAERS Safety Report 6414831-X (Version None)
Quarter: 2009Q4

REPORT INFORMATION
  Report Type: 
  Country: None (occurrence: None)
  Receive Date: 20091026
  Receipt Date: 20091026
  Transmission Date: 20100525
  Serious: Yes (Other)
  Sender: FDA-Public Use
  Company Number: None

PATIENT
  Age: 44 Year
  Sex: Female
  Weight: 75.2971 kg

DRUGS (1)
  1. PRISTIQ [Suspect]
     Indication: PANIC DISORDER
     Dosage: 50 MG DAILIY
     Dates: start: 20091012, end: 20091019

REACTIONS (5)
  - CONSTIPATION [None]
  - ENERGY INCREASED [None]
  - EUPHORIC MOOD [None]
  - HEADACHE [None]
  - INSOMNIA [None]
